FAERS Safety Report 7131360-9 (Version None)
Quarter: 2010Q4

REPORT INFORMATION
  Report Type: 
  Country: None (occurrence: None)
  Receive Date: 20101201
  Receipt Date: 20091209
  Transmission Date: 20110411
  Serious: No
  Sender: FDA-Public Use
  Company Number: US-TYCO HEALTHCARE/MALLINCKRODT-T200902314

PATIENT
  Age: 11 Year
  Sex: Male
  Weight: 45.351 kg

DRUGS (7)
  1. METHYLIN [Suspect]
     Indication: ATTENTION DEFICIT/HYPERACTIVITY DISORDER
     Dosage: 10 MG, QD
     Dates: start: 20080801, end: 20091001
  2. DAYTRANA [Suspect]
     Indication: ATTENTION DEFICIT/HYPERACTIVITY DISORDER
     Dosage: 10 MG, QD
     Route: 062
     Dates: start: 20080801, end: 20080801
  3. DAYTRANA [Suspect]
     Dosage: 15 MG, QD
     Route: 062
     Dates: start: 20080101, end: 20090101
  4. DAYTRANA [Suspect]
     Dosage: 20 MG, UNK
     Dates: start: 20090101, end: 20091001
  5. DAYTRANA [Suspect]
     Dosage: 30 MG, QD
     Route: 062
     Dates: start: 20091001
  6. INTUNIV [Suspect]
     Indication: ATTENTION DEFICIT/HYPERACTIVITY DISORDER
     Dosage: 1 MG, QD
     Route: 048
     Dates: start: 20091103, end: 20091109
  7. INTUNIV [Suspect]
     Dosage: 2 MG, QD
     Route: 048
     Dates: start: 20091110, end: 20091117

REACTIONS (5)
  - ABNORMAL BEHAVIOUR [None]
  - AGGRESSION [None]
  - DECREASED APPETITE [None]
  - DRUG INEFFECTIVE [None]
  - FIGHT IN SCHOOL [None]
